FAERS Safety Report 9150654 (Version 1)
Quarter: 2013Q1

REPORT INFORMATION
  Report Type: Spontaneous
  Country: US (occurrence: None)
  Receive Date: 20130305
  Receipt Date: 20130305
  Transmission Date: 20140127
  Serious: No
  Sender: FDA-Public Use
  Company Number: None

PATIENT
  Age: 37 Year
  Sex: Female
  Weight: 68.04 kg

DRUGS (2)
  1. CHILDRENS MUCINEX MULTI-SYMPTOM COLD [Suspect]
     Indication: NASOPHARYNGITIS
     Route: 048
     Dates: start: 20130301, end: 20130301
  2. CHILDRENS MUCINEX MULTI-SYMPTOM COLD [Suspect]
     Indication: PYREXIA
     Route: 048
     Dates: start: 20130301, end: 20130301

REACTIONS (6)
  - Drug administered to patient of inappropriate age [None]
  - Feeling jittery [None]
  - Hallucinations, mixed [None]
  - Nightmare [None]
  - Anxiety [None]
  - Feeling abnormal [None]
